FAERS Safety Report 25433020 (Version 2)
Quarter: 2025Q2

REPORT INFORMATION
  Report Type: Spontaneous
  Country: ES (occurrence: ES)
  Receive Date: 20250613
  Receipt Date: 20250616
  Transmission Date: 20250717
  Serious: Yes (Other)
  Sender: SERVIER
  Company Number: None

PATIENT

DRUGS (1)
  1. PEGASPARGASE [Suspect]
     Active Substance: PEGASPARGASE
     Indication: Acute lymphocytic leukaemia
     Route: 065
     Dates: start: 20241105

REACTIONS (1)
  - Cardiac ventricular thrombosis [Unknown]

NARRATIVE: CASE EVENT DATE: 20250506
